FAERS Safety Report 4713957-6 (Version None)
Quarter: 2005Q3

REPORT INFORMATION
  Report Type: 
  Country: None (occurrence: None)
  Receive Date: 20050712
  Receipt Date: 20050624
  Transmission Date: 20060218
  Serious: Yes (Life-Threatening, Other)
  Sender: FDA-Public Use
  Company Number: EWC050644657

PATIENT
  Age: 80 Year
  Sex: Female

DRUGS (10)
  1. ZYPREXA [Suspect]
     Indication: MAJOR DEPRESSION
     Dosage: 15 MG DAY
     Dates: start: 20020501, end: 20040419
  2. ZYPREXA [Suspect]
     Indication: PSYCHOTIC DISORDER
     Dosage: 15 MG DAY
     Dates: start: 20020501, end: 20040419
  3. EFFEXOR [Concomitant]
  4. NORTRIPTYLINE HCL [Concomitant]
  5. ALBYL-E [Concomitant]
  6. PERSANTIN [Concomitant]
  7. ZOPLICONE (ZOPICLONE) [Concomitant]
  8. COZAAR [Concomitant]
  9. LORAZEPAM [Concomitant]
  10. LEVAXIN (LEVOTHYROXINE SODIUM) [Concomitant]

REACTIONS (4)
  - GENERAL PHYSICAL HEALTH DETERIORATION [None]
  - RESPIRATORY DEPRESSION [None]
  - SEROTONIN SYNDROME [None]
  - SOMNOLENCE [None]
